FAERS Safety Report 6434808-8 (Version None)
Quarter: 2009Q4

REPORT INFORMATION
  Report Type: 
  Country: None (occurrence: None)
  Receive Date: 20091109
  Receipt Date: 20091109
  Transmission Date: 20100525
  Serious: Yes (Other)
  Sender: FDA-Public Use
  Company Number: None

PATIENT
  Age: 32 Year
  Sex: Female
  Weight: 63 kg

DRUGS (1)
  1. NIMS-NIMESULIDE- 100MG NIMS SAMI COX 2 INHIBITOR [Suspect]
     Indication: TOOTHACHE
     Dosage: 100MG TID PO
     Route: 048
     Dates: start: 20091007, end: 20091009

REACTIONS (3)
  - CHROMATURIA [None]
  - DECREASED APPETITE [None]
  - DIZZINESS [None]
